FAERS Safety Report 5881987-7 (Version None)
Quarter: 2008Q3

REPORT INFORMATION
  Report Type: 
  Country: None (occurrence: None)
  Receive Date: 20080912
  Receipt Date: 20080717
  Transmission Date: 20090109
  Serious: No
  Sender: FDA-Public Use
  Company Number: US-ABBOTT-08P-163-0464281-00

PATIENT
  Sex: Male
  Weight: 67.646 kg

DRUGS (5)
  1. HUMIRA [Suspect]
     Indication: CROHN'S DISEASE
     Dosage: 160 MG STARTER DOSE
     Route: 058
     Dates: start: 20080716
  2. MESALAMINE [Concomitant]
     Indication: CROHN'S DISEASE
     Dosage: 3 PILLS DAILY
     Route: 048
  3. MONTELUKAST SODIUM [Concomitant]
     Indication: SEASONAL ALLERGY
     Route: 048
     Dates: start: 20010101
  4. HYDROXY Z [Concomitant]
     Indication: SEASONAL ALLERGY
     Route: 048
     Dates: start: 20010101
  5. ESOMEPRAZOLE MAGNESIUM [Concomitant]
     Indication: GASTROOESOPHAGEAL REFLUX DISEASE
     Route: 048
     Dates: start: 20050101

REACTIONS (2)
  - INJECTION SITE HAEMATOMA [None]
  - INJECTION SITE PAIN [None]
